FAERS Safety Report 15804353 (Version 1)
Quarter: 2019Q1

REPORT INFORMATION
  Report Type: Report from Study
  Country: US (occurrence: US)
  Receive Date: 20190109
  Receipt Date: 20190109
  Transmission Date: 20190417
  Serious: Yes (Hospitalization, Other)
  Sender: FDA-Public Use
  Company Number: US-SHIRE-US201849760

PATIENT
  Age: 76 Year
  Sex: Male

DRUGS (1)
  1. GATTEX [Suspect]
     Active Substance: TEDUGLUTIDE\WATER
     Indication: SHORT-BOWEL SYNDROME
     Dosage: 0.35 ML, 1X/DAY:QD
     Route: 058
     Dates: start: 20181106

REACTIONS (6)
  - Inflammation [Unknown]
  - Enteritis infectious [Unknown]
  - Dehydration [Unknown]
  - Flatulence [Recovered/Resolved]
  - Haemorrhoids [Unknown]
  - Hyperkalaemia [Unknown]

NARRATIVE: CASE EVENT DATE: 201812
